FAERS Safety Report 8107289-6 (Version None)
Quarter: 2012Q1

REPORT INFORMATION
  Report Type: 
  Country: None (occurrence: None)
  Receive Date: 20120202
  Receipt Date: 20120127
  Transmission Date: 20120608
  Serious: Yes (Death)
  Sender: FDA-Public Use
  Company Number: US-PFIZER INC-2012022717

PATIENT
  Sex: Male

DRUGS (2)
  1. LOVAZA [Concomitant]
     Dosage: 1000 MG, UNK
  2. SUTENT [Suspect]
     Dosage: 50 MG, 1 CAPSULE BY MOUTH EVERY DAY FOR 4 WEEKS FOLLOWED BY 2 WEEKS OFF
     Route: 048

REACTIONS (1)
  - DEATH [None]
